FAERS Safety Report 8297821-4 (Version None)
Quarter: 2012Q2

REPORT INFORMATION
  Report Type: 
  Country: None (occurrence: None)
  Receive Date: 20120419
  Receipt Date: 20120414
  Transmission Date: 20120825
  Serious: Yes (Other)
  Sender: FDA-Public Use
  Company Number: US-BAYER-2011-121498

PATIENT
  Age: 25 Year
  Sex: Female
  Weight: 61 kg

DRUGS (9)
  1. YAZ [Suspect]
     Indication: CONTRACEPTION
     Dosage: UNK
     Dates: start: 20070101, end: 20080501
  2. ONDANSETRON HCL [Concomitant]
     Dosage: 4 MG, UNK
     Route: 048
     Dates: start: 20080228
  3. MISOPROSTOL [Concomitant]
     Dosage: 100 MG, UNK
     Route: 048
     Dates: start: 20090329
  4. PROPOXYPHENE HCL AND ACETAMINOPHEN [Concomitant]
     Dosage: 100-650MG TABLET
     Route: 048
     Dates: start: 20090307
  5. YAZ [Suspect]
     Dosage: UNK
     Dates: start: 20081101, end: 20090201
  6. LEXAPRO [Concomitant]
     Dosage: 20 MG, UNK
     Dates: start: 20080222
  7. HYDROCODONE BITARTRATE AND ACETAMINOPHEN [Concomitant]
     Dosage: 5-500MG TABLET
     Route: 048
     Dates: start: 20080228
  8. ALPRAZOLAM [Concomitant]
     Dosage: 0.5 MG, UNK
     Route: 048
     Dates: start: 20080218
  9. BUPROPION HCL [Concomitant]
     Dosage: 150 MG, UNK
     Route: 048
     Dates: start: 20080229

REACTIONS (5)
  - GALLBLADDER INJURY [None]
  - MENTAL DISORDER [None]
  - INJURY [None]
  - CHOLELITHIASIS [None]
  - PAIN [None]
